FAERS Safety Report 6003931-4 (Version None)
Quarter: 2008Q4

REPORT INFORMATION
  Report Type: 
  Country: None (occurrence: None)
  Receive Date: 20081216
  Receipt Date: 20081204
  Transmission Date: 20090506
  Serious: Yes (Hospitalization, Other)
  Sender: FDA-Public Use
  Company Number: BR-PFIZER INC-2008100684

PATIENT

DRUGS (7)
  1. EXEMESTANE [Suspect]
     Indication: BREAST CANCER
     Route: 048
     Dates: start: 20081021
  2. CP-751,871 [Suspect]
     Indication: BREAST CANCER
     Dosage: 20 MG/M2, SINGLE EVERY 21 DAYS
     Route: 042
     Dates: start: 20081021
  3. RANITIDINE [Concomitant]
     Route: 048
     Dates: start: 20081105
  4. LORAZEPAM [Concomitant]
     Route: 048
     Dates: start: 20081027
  5. METOCLOPRAMIDE [Concomitant]
     Route: 048
     Dates: start: 20081113, end: 20081124
  6. HYOSCINE [Concomitant]
     Route: 048
     Dates: start: 20081113, end: 20081124
  7. ACETORPHAN [Concomitant]
     Dosage: UNK
     Dates: start: 20081113, end: 20081115

REACTIONS (1)
  - THROMBOSIS [None]
